FAERS Safety Report 14319036 (Version 8)
Quarter: 2018Q3

REPORT INFORMATION
  Report Type: Report from Study
  Country: US (occurrence: US)
  Receive Date: 20171222
  Receipt Date: 20180920
  Transmission Date: 20181010
  Serious: Yes (Hospitalization)
  Sender: FDA-Public Use
  Company Number: US-ACTELION-A-US2016-134854

PATIENT
  Age: 57 Year
  Sex: Female
  Weight: 52.15 kg

DRUGS (8)
  1. VELETRI [Suspect]
     Active Substance: EPOPROSTENOL
     Dosage: 72 NG/KG, PER MIN
     Route: 042
  2. LETAIRIS [Suspect]
     Active Substance: AMBRISENTAN
     Indication: PRODUCT USED FOR UNKNOWN INDICATION
     Route: 065
  3. NICARDIPINE [Concomitant]
     Active Substance: NICARDIPINE
  4. ADCIRCA [Suspect]
     Active Substance: TADALAFIL
     Indication: PRODUCT USED FOR UNKNOWN INDICATION
     Route: 065
  5. NIFEDIPINE. [Concomitant]
     Active Substance: NIFEDIPINE
  6. VELETRI [Suspect]
     Active Substance: EPOPROSTENOL
     Dosage: 70 NG/KG, PER MIN
     Route: 042
  7. VELETRI [Suspect]
     Active Substance: EPOPROSTENOL
     Indication: PULMONARY ARTERIAL HYPERTENSION
     Dosage: 54 NG/KG, PER MIN
     Route: 042
     Dates: start: 20160128
  8. VELETRI [Suspect]
     Active Substance: EPOPROSTENOL
     Dosage: 58 NG/KG, PER MIN
     Route: 042
     Dates: start: 20160128

REACTIONS (26)
  - Angioedema [Recovering/Resolving]
  - Swelling face [Unknown]
  - Weight increased [Unknown]
  - Pharyngeal oedema [Unknown]
  - Hypersensitivity [Unknown]
  - Swelling [Unknown]
  - Oxygen saturation decreased [Unknown]
  - Pain in extremity [Unknown]
  - Back pain [Unknown]
  - Nerve compression [Unknown]
  - Catheter site pain [Unknown]
  - Catheter site rash [Unknown]
  - Weight decreased [Unknown]
  - Asthenia [Unknown]
  - Gait inability [Unknown]
  - Dyspnoea exertional [Unknown]
  - Catheter site pruritus [Unknown]
  - First bite syndrome [Unknown]
  - Peripheral swelling [Unknown]
  - Nerve injury [Unknown]
  - Catheter site erythema [Unknown]
  - Catheter site inflammation [Unknown]
  - Dry skin [Unknown]
  - Skin discolouration [Unknown]
  - Swollen tongue [Unknown]
  - Arthropathy [Unknown]

NARRATIVE: CASE EVENT DATE: 20171213
